FAERS Safety Report 8480400-3 (Version None)
Quarter: 2012Q3

REPORT INFORMATION
  Report Type: 
  Country: None (occurrence: None)
  Receive Date: 20120702
  Receipt Date: 20120620
  Transmission Date: 20120928
  Serious: Yes (Other)
  Sender: FDA-Public Use
  Company Number: US-ROCHE-1080370

PATIENT
  Sex: Female

DRUGS (4)
  1. PREDNISONE TAB [Concomitant]
     Dosage: 1 PILL/DAY
  2. METHOTREXATE [Concomitant]
  3. ACTEMRA [Suspect]
     Dates: start: 20120526
  4. ACTEMRA [Suspect]
     Indication: RHEUMATOID ARTHRITIS
     Route: 042
     Dates: start: 20101001

REACTIONS (3)
  - KNEE ARTHROPLASTY [None]
  - ARTHRITIS [None]
  - RHEUMATOID ARTHRITIS [None]
